FAERS Safety Report 4693790-4 (Version None)
Quarter: 2005Q2

REPORT INFORMATION
  Report Type: 
  Country: None (occurrence: None)
  Receive Date: 20050616
  Receipt Date: 20050531
  Transmission Date: 20051028
  Serious: Yes (Hospitalization)
  Sender: FDA-Public Use
  Company Number: ACO_0166_2005

PATIENT
  Age: 62 Year
  Sex: Female

DRUGS (3)
  1. TERNELIN [Suspect]
     Indication: ARTHRALGIA
     Dosage: 2 MG QDAY PO
     Route: 048
     Dates: start: 20050428, end: 20050428
  2. VOLTAREN [Suspect]
     Indication: ARTHRALGIA
     Dosage: 75 MG QDAY PO
     Route: 048
     Dates: start: 20050428, end: 20050428
  3. MUCOSTA [Suspect]
     Indication: ARTHRALGIA
     Dosage: 2 DF QDAY
     Dates: start: 20050428, end: 20050428

REACTIONS (3)
  - EXANTHEM [None]
  - HYPOTENSION [None]
  - VOMITING [None]
